FAERS Safety Report 9444332 (Version 1)
Quarter: 2013Q3

REPORT INFORMATION
  Report Type: Spontaneous
  Country: US (occurrence: None)
  Receive Date: 20130806
  Receipt Date: 20130806
  Transmission Date: 20140515
  Serious: Yes (Hospitalization)
  Sender: FDA-Public Use
  Company Number: None

PATIENT
  Age: 82 Year
  Sex: Male
  Weight: 57.9 kg

DRUGS (1)
  1. HYDROMORPHONE [Suspect]
     Indication: PAIN
     Route: 048
     Dates: start: 20130718, end: 20130725

REACTIONS (10)
  - Fall [None]
  - Confusional state [None]
  - Subdural haemorrhage [None]
  - Agitation [None]
  - Restlessness [None]
  - Mental status changes [None]
  - Concussion [None]
  - Infection [None]
  - Metabolic disorder [None]
  - Neurological decompensation [None]
